FAERS Safety Report 16895639 (Version 1)
Quarter: 2019Q4

REPORT INFORMATION
  Report Type: Spontaneous
  Country: US (occurrence: US)
  Receive Date: 20191007
  Receipt Date: 20191007
  Transmission Date: 20200122
  Serious: Yes (Other)
  Sender: FDA-Public Use
  Company Number: None

PATIENT
  Age: 36 Year
  Sex: Female
  Weight: 52.2 kg

DRUGS (9)
  1. TRICALCIUM PHOSPHATE\MELATONIN [Concomitant]
  2. ZOLPIDEM [Concomitant]
     Active Substance: ZOLPIDEM TARTRATE
  3. OCCASIONAL TYLENOL [Concomitant]
  4. RANITIDINE 150 MG TABLETS [Suspect]
     Active Substance: RANITIDINE
     Indication: ANTIALLERGIC THERAPY
     Dosage: ?          QUANTITY:1 TABLET(S);?
     Route: 048
     Dates: start: 20190508, end: 20191007
  5. ADDERALL [Concomitant]
     Active Substance: AMPHETAMINE ASPARTATE\AMPHETAMINE SULFATE\DEXTROAMPHETAMINE SACCHARATE\DEXTROAMPHETAMINE SULFATE
  6. LOW DOSE NATREXONE [Concomitant]
  7. ALKA-SETZER [Concomitant]
  8. RANITIDINE 150 MG TABLETS [Suspect]
     Active Substance: RANITIDINE
     Indication: GASTRIC PH DECREASED
     Dosage: ?          QUANTITY:1 TABLET(S);?
     Route: 048
     Dates: start: 20190508, end: 20191007
  9. NORYDA [Concomitant]

REACTIONS (9)
  - Headache [None]
  - Nausea [None]
  - Heart rate abnormal [None]
  - Chest pain [None]
  - Dyspnoea [None]
  - Dizziness [None]
  - Blepharospasm [None]
  - Rash [None]
  - Vision blurred [None]

NARRATIVE: CASE EVENT DATE: 20191007
